FAERS Safety Report 16257735 (Version 1)
Quarter: 2019Q2

REPORT INFORMATION
  Report Type: Report from Study
  Country: IT (occurrence: IT)
  Receive Date: 20190430
  Receipt Date: 20190430
  Transmission Date: 20190711
  Serious: Yes (Other)
  Sender: FDA-Public Use
  Company Number: IT-PFIZER INC-2019180681

PATIENT
  Age: 88 Year
  Sex: Male

DRUGS (6)
  1. ZOLOFT [Suspect]
     Active Substance: SERTRALINE HYDROCHLORIDE
     Dosage: 150 MG, 1X/DAY
  2. OMNIC [Concomitant]
     Active Substance: TAMSULOSIN HYDROCHLORIDE
     Dosage: UNK
  3. IBUSTRIN [INDOBUFEN SODIUM] [Concomitant]
     Dosage: UNK
  4. RYTMONORM [Interacting]
     Active Substance: PROPAFENONE
     Dosage: 450 MG, 1X/DAY
  5. DEPAKIN [Concomitant]
     Active Substance: VALPROATE SODIUM
     Dosage: 600 MG, UNK
  6. EXELON [Concomitant]
     Active Substance: RIVASTIGMINE TARTRATE
     Dosage: 3 MG, 1X/DAY

REACTIONS (4)
  - Drug interaction [Recovering/Resolving]
  - Dyspnoea [Recovering/Resolving]
  - Loss of consciousness [Recovering/Resolving]
  - Supraventricular tachycardia [Recovering/Resolving]

NARRATIVE: CASE EVENT DATE: 20190107
